FAERS Safety Report 6355067 (Version 3)
Quarter: 2016Q4

REPORT INFORMATION
  Report Type: Spontaneous
  Country: GB (occurrence: GB)
  Receive Date: 20070711
  Receipt Date: 20161005
  Transmission Date: 20170207
  Serious: Yes (Other)
  Sender: FDA-Public Use
  Company Number: GB-ALLERGAN-0707299US

PATIENT
  Age: 71 Year
  Sex: Female

DRUGS (14)
  1. CYCLOPENTOLATE MINIMS [Suspect]
     Active Substance: CYCLOPENTOLATE HYDROCHLORIDE
     Indication: PREOPERATIVE CARE
     Dosage: 1 DF, UNK
     Route: 047
     Dates: start: 20070504, end: 20070504
  2. BALANCED SALT [Suspect]
     Active Substance: CALCIUM CHLORIDE\MAGNESIUM CHLORIDE\POTASSIUM CHLORIDE\SODIUM ACETATE\SODIUM CHLORIDE\SODIUM CITRATE
     Indication: EYE IRRIGATION
     Dates: start: 20070501, end: 20070501
  3. OCUFEN [Suspect]
     Active Substance: FLURBIPROFEN SODIUM
     Dosage: UNK
  4. CHLORAMPHENICOL 0.5% SOL [Suspect]
     Active Substance: CHLORAMPHENICOL
     Indication: CATARACT OPERATION
     Dosage: 1 DF, UNK
     Route: 047
     Dates: start: 20070501, end: 20070501
  5. HEALON [Suspect]
     Active Substance: HYALURONATE SODIUM
     Indication: CATARACT OPERATION
     Route: 047
     Dates: start: 20070501, end: 20070501
  6. BETAMETHASONE. [Suspect]
     Active Substance: BETAMETHASONE
     Indication: POSTOPERATIVE CARE
     Route: 047
     Dates: start: 20070501, end: 20070501
  7. OCUFEN [Suspect]
     Active Substance: FLURBIPROFEN SODIUM
     Indication: PREOPERATIVE CARE
     Dosage: UNK, UNK
     Route: 047
     Dates: start: 20070501, end: 20070501
  8. OCUFEN [Suspect]
     Active Substance: FLURBIPROFEN SODIUM
     Indication: PREOPERATIVE CARE
     Dosage: UNK
  9. PHENYLEPHRINE [Suspect]
     Active Substance: PHENYLEPHRINE\PHENYLEPHRINE HYDROCHLORIDE
     Indication: CATARACT OPERATION
     Dosage: 1 DF, UNK
     Route: 047
     Dates: start: 20070501, end: 20070501
  10. NEOMYCIN [Suspect]
     Active Substance: NEOMYCIN
     Indication: POSTOPERATIVE CARE
     Route: 047
     Dates: start: 20070501, end: 20070501
  11. ADRENALINE [Suspect]
     Active Substance: EPINEPHRINE
     Indication: EYE IRRIGATION
     Dosage: 0.3 ML, UNK
     Route: 047
     Dates: start: 20070504, end: 20070504
  12. LIDOCAINE. [Suspect]
     Active Substance: LIDOCAINE
     Indication: ANAESTHESIA
     Dosage: 1 DF, UNK
     Route: 047
     Dates: start: 20070504, end: 20070504
  13. POVIDONE-IODINE. [Suspect]
     Active Substance: POVIDONE-IODINE
     Indication: CATARACT OPERATION
     Route: 047
     Dates: start: 20070501, end: 20070501
  14. VANCOMYCIN [Suspect]
     Active Substance: VANCOMYCIN
     Indication: CATARACT OPERATION
     Dosage: 10 MG, UNK
     Route: 047
     Dates: start: 20070501, end: 20070501

REACTIONS (1)
  - Toxic anterior segment syndrome [Recovering/Resolving]

NARRATIVE: CASE EVENT DATE: 20070510
